FAERS Safety Report 23530907 (Version 1)
Quarter: 2024Q1

REPORT INFORMATION
  Report Type: Spontaneous
  Country: US (occurrence: US)
  Receive Date: 20240216
  Receipt Date: 20240216
  Transmission Date: 20240410
  Serious: No
  Sender: FDA-Public Use
  Company Number: US-VIIV HEALTHCARE LIMITED-US2024016686

PATIENT
  Sex: Male

DRUGS (1)
  1. TIVICAY [Interacting]
     Active Substance: DOLUTEGRAVIR SODIUM
     Indication: Product used for unknown indication
     Dosage: 100 MG, BID

REACTIONS (3)
  - Drug interaction [Not Recovered/Not Resolved]
  - Extra dose administered [Unknown]
  - Therapeutic product effect decreased [Unknown]
